FAERS Safety Report 25683039 (Version 2)
Quarter: 2025Q3

REPORT INFORMATION
  Report Type: Spontaneous
  Country: CA (occurrence: CA)
  Receive Date: 20250814
  Receipt Date: 20250918
  Transmission Date: 20251021
  Serious: Yes (Hospitalization, Other)
  Sender: TAKEDA
  Company Number: CA-TAKEDA-2025TUS071672

PATIENT
  Age: 62 Year
  Sex: Male
  Weight: 57 kg

DRUGS (18)
  1. MESALAMINE [Suspect]
     Active Substance: MESALAMINE
     Indication: Colitis ulcerative
     Dosage: 4800 MILLIGRAM, QD
  2. MESALAMINE [Suspect]
     Active Substance: MESALAMINE
     Dosage: 4800 MILLIGRAM, QD
     Dates: start: 20241219, end: 20250308
  3. KEYTRUDA [Suspect]
     Active Substance: PEMBROLIZUMAB
     Indication: Lung neoplasm malignant
     Dosage: 2 MILLIGRAM/KILOGRAM, Q3WEEKS
     Dates: end: 20250217
  4. KEYTRUDA [Suspect]
     Active Substance: PEMBROLIZUMAB
     Dosage: 2 MILLIGRAM/KILOGRAM, Q3WEEKS
     Dates: start: 20250127, end: 20250217
  5. ACETAMINOPHEN [Concomitant]
     Active Substance: ACETAMINOPHEN
  6. ATORVASTATIN [Concomitant]
     Active Substance: ATORVASTATIN
  7. CALCIUM [Concomitant]
     Active Substance: CALCIUM
  8. CHOLECALCIFEROL [Concomitant]
     Active Substance: CHOLECALCIFEROL
  9. CYCLOBENZAPRINE [Concomitant]
     Active Substance: CYCLOBENZAPRINE
  10. DEXILANT [Concomitant]
     Active Substance: DEXLANSOPRAZOLE
  11. DOVATO [Concomitant]
     Active Substance: DOLUTEGRAVIR SODIUM\LAMIVUDINE
  12. HYDROMORPHONE [Concomitant]
     Active Substance: HYDROMORPHONE
  13. MESALAMINE [Concomitant]
     Active Substance: MESALAMINE
  14. PREGABALIN [Concomitant]
     Active Substance: PREGABALIN
  15. PROCHLORPERAZINE [Concomitant]
     Active Substance: PROCHLORPERAZINE
  16. RISEDRONATE SODIUM [Concomitant]
     Active Substance: RISEDRONATE SODIUM
  17. VALACYCLOVIR [Concomitant]
     Active Substance: VALACYCLOVIR HYDROCHLORIDE
  18. DEXLANSOPRAZOLE [Concomitant]
     Active Substance: DEXLANSOPRAZOLE

REACTIONS (2)
  - Bone marrow failure [Recovered/Resolved]
  - Neutropenia [Recovered/Resolved]

NARRATIVE: CASE EVENT DATE: 20250307
